FAERS Safety Report 25278453 (Version 1)
Quarter: 2025Q2

REPORT INFORMATION
  Report Type: Spontaneous
  Country: US (occurrence: None)
  Receive Date: 20250506
  Receipt Date: 20250506
  Transmission Date: 20250716
  Serious: Yes (Life-Threatening)
  Sender: FDA-CTU
  Company Number: None

PATIENT
  Age: 58 Year
  Sex: Female
  Weight: 62.1 kg

DRUGS (1)
  1. MUCINEX FAST-MAX COLD AND FLU [Suspect]
     Active Substance: ACETAMINOPHEN\DEXTROMETHORPHAN HYDROBROMIDE\GUAIFENESIN\PHENYLEPHRINE HYDROCHLORIDE
     Indication: Nasopharyngitis
     Dosage: OTHER QUANTITY : 16 CAPSULE(S);?FREQUENCY : EVERY 4 HOURS;?
     Route: 048
     Dates: start: 20250504, end: 20250505

REACTIONS (10)
  - Dry throat [None]
  - Nasal congestion [None]
  - Dyspnoea [None]
  - Nausea [None]
  - Decreased appetite [None]
  - Suffocation feeling [None]
  - Hypoaesthesia [None]
  - Heart rate increased [None]
  - Drug ineffective [None]
  - Suspected counterfeit product [None]

NARRATIVE: CASE EVENT DATE: 20250504
